FAERS Safety Report 9112132 (Version 2)
Quarter: 2014Q1

REPORT INFORMATION
  Report Type: Spontaneous
  Country: US (occurrence: US)
  Receive Date: 20130219
  Receipt Date: 20140213
  Transmission Date: 20141002
  Serious: No
  Sender: FDA-Public Use
  Company Number: US-BRISTOL-MYERS SQUIBB COMPANY-17055054

PATIENT
  Age: 78 Year
  Sex: Female
  Weight: 77 kg

DRUGS (2)
  1. ORENCIA FOR INJ [Suspect]
     Indication: RHEUMATOID ARTHRITIS
     Dosage: LAST INF 17OCT12,5DEC12,06FEB13
     Route: 042
     Dates: start: 201211
  2. LASIX [Concomitant]

REACTIONS (7)
  - Drug ineffective [Unknown]
  - Wound [Unknown]
  - Blister [Unknown]
  - Joint swelling [Unknown]
  - Urinary tract infection [Unknown]
  - Weight increased [Unknown]
  - Contusion [Unknown]
